FAERS Safety Report 5407471-2 (Version None)
Quarter: 2007Q3

REPORT INFORMATION
  Report Type: 
  Country: None (occurrence: None)
  Receive Date: 20070807
  Receipt Date: 20070725
  Transmission Date: 20080115
  Serious: Yes (Hospitalization)
  Sender: FDA-Public Use
  Company Number: US-ELI_LILLY_AND_COMPANY-US200706004884

PATIENT
  Age: 85 Year
  Sex: Female

DRUGS (8)
  1. CYMBALTA [Suspect]
     Indication: DEPRESSION
     Dosage: 60 MG, UNK
     Dates: start: 20061212, end: 20070113
  2. ARICEPT [Concomitant]
  3. NAMENDA [Concomitant]
  4. PLAVIX [Concomitant]
  5. XANAX [Concomitant]
  6. KLOR-CON [Concomitant]
  7. FOLIC ACID [Concomitant]
  8. TOPROL-XL [Concomitant]

REACTIONS (5)
  - DECREASED ACTIVITY [None]
  - DROOLING [None]
  - FLAT AFFECT [None]
  - LACK OF SPONTANEOUS SPEECH [None]
  - TARDIVE DYSKINESIA [None]
